FAERS Safety Report 22120947 (Version 1)
Quarter: 2023Q1

REPORT INFORMATION
  Report Type: Report from Study
  Country: AU (occurrence: AU)
  Receive Date: 20230321
  Receipt Date: 20230321
  Transmission Date: 20230417
  Serious: Yes (Death, Other)
  Sender: FDA-Public Use
  Company Number: AU-002147023-NVSC2021AU053937

PATIENT
  Sex: Female

DRUGS (5)
  1. CAPMATINIB [Interacting]
     Active Substance: CAPMATINIB
     Indication: Non-small cell lung cancer
     Dosage: 400 MG, BID
     Route: 048
     Dates: start: 20201231, end: 20210217
  2. CAPMATINIB [Interacting]
     Active Substance: CAPMATINIB
     Indication: Lung adenocarcinoma stage IV
     Dosage: 300 MG, BID
     Route: 048
     Dates: start: 20210303
  3. CAPMATINIB [Interacting]
     Active Substance: CAPMATINIB
     Dosage: 300MG MANE AND 400MG NOCTE
     Route: 048
  4. CAPMATINIB [Interacting]
     Active Substance: CAPMATINIB
     Dosage: 100 MG (300 MG BID)
     Route: 048
  5. ENOXAPARIN SODIUM [Concomitant]
     Active Substance: ENOXAPARIN SODIUM
     Indication: Anticoagulant therapy
     Dosage: UNK
     Route: 048

REACTIONS (4)
  - Death [Fatal]
  - Alanine aminotransferase increased [Recovered/Resolved]
  - Alanine aminotransferase increased [Unknown]
  - Drug intolerance [Unknown]

NARRATIVE: CASE EVENT DATE: 20210217
